FAERS Safety Report 7411774-X (Version None)
Quarter: 2011Q2

REPORT INFORMATION
  Report Type: 
  Country: None (occurrence: None)
  Receive Date: 20110413
  Receipt Date: 20110113
  Transmission Date: 20111010
  Serious: Yes (Hospitalization)
  Sender: FDA-Public Use
  Company Number: US-BRISTOL-MYERS SQUIBB COMPANY-15480650

PATIENT
  Age: 9 Decade
  Sex: Female

DRUGS (11)
  1. ASPIRIN [Concomitant]
  2. ERBITUX [Suspect]
     Indication: THROAT CANCER
     Dosage: RECEIVING OVER AN YEAR
     Route: 042
  3. LISINOPRIL [Concomitant]
  4. LORAZEPAM [Concomitant]
  5. ERBITUX [Suspect]
     Indication: LIP AND/OR ORAL CAVITY CANCER
     Dosage: RECEIVING OVER AN YEAR
     Route: 042
  6. MULTI-VITAMINS [Concomitant]
  7. MONISTAT [Concomitant]
  8. LEXAPRO [Concomitant]
  9. SYNTHROID [Concomitant]
  10. MINOCYCLINE [Concomitant]
  11. BYSTOLIC [Concomitant]

REACTIONS (2)
  - OEDEMA MOUTH [None]
  - DYSPNOEA [None]
